FAERS Safety Report 8196194-5 (Version None)
Quarter: 2012Q1

REPORT INFORMATION
  Report Type: 
  Country: None (occurrence: None)
  Receive Date: 20120307
  Receipt Date: 20120307
  Transmission Date: 20120608
  Serious: Yes (Other)
  Sender: FDA-Public Use
  Company Number: None

PATIENT
  Age: 73 Year
  Sex: Female
  Weight: 94.3482 kg

DRUGS (3)
  1. RELION ALCOHOL PAIN RELIEF SWABS [Suspect]
     Indication: BLOOD GLUCOSE
     Dosage: RELION ALCOHOL SWABS (PAIN RELIEF) ONCE OR TWICE DAILY 2-6 - 2-9
     Route: 061
     Dates: start: 20120206, end: 20120219
  2. SULFAMETHOXAZOLE AND TRIMETHOPRIM [Suspect]
     Indication: URINARY TRACT INFECTION
     Dosage: 1 TAB 2 X DAILY EVERY 12 HRS 2-5 / 2-15
     Dates: start: 20120205, end: 20120215
  3. CIPROFLOXACIN [Concomitant]

REACTIONS (6)
  - ALANINE AMINOTRANSFERASE INCREASED [None]
  - RENAL FUNCTION TEST ABNORMAL [None]
  - PRODUCT CONTAMINATION MICROBIAL [None]
  - POOR QUALITY DRUG ADMINISTERED [None]
  - ASPARTATE AMINOTRANSFERASE INCREASED [None]
  - PRODUCT QUALITY ISSUE [None]
